FAERS Safety Report 18146809 (Version 1)
Quarter: 2020Q3

REPORT INFORMATION
  Report Type: Spontaneous
  Country: SK (occurrence: SK)
  Receive Date: 20200813
  Receipt Date: 20200813
  Transmission Date: 20201103
  Serious: Yes (Other)
  Sender: FDA-Public Use
  Company Number: SK-FRESENIUS KABI-FK202008128

PATIENT
  Age: 24 Year
  Sex: Male

DRUGS (3)
  1. CEFTRIAXONE. [Concomitant]
     Active Substance: CEFTRIAXONE
     Indication: ENDOCARDITIS
  2. MOXIFLOXACIN (MANUFACTURER UNKNOWN) [Suspect]
     Active Substance: MOXIFLOXACIN
     Indication: ENDOCARDITIS
     Dosage: UNK
     Route: 065
  3. VANCOMYCIN [Concomitant]
     Active Substance: VANCOMYCIN
     Indication: ENDOCARDITIS

REACTIONS (1)
  - Neurotoxicity [Unknown]
